FAERS Safety Report 12445099 (Version 3)
Quarter: 2016Q3

REPORT INFORMATION
  Report Type: Spontaneous
  Country: US (occurrence: US)
  Receive Date: 20160607
  Receipt Date: 20160919
  Transmission Date: 20161109
  Serious: No
  Sender: FDA-Public Use
  Company Number: US-PFIZER INC-2016289712

PATIENT
  Age: 63 Year
  Sex: Male

DRUGS (3)
  1. LIDOCAINE HCL [Suspect]
     Active Substance: LIDOCAINE HYDROCHLORIDE
     Indication: HEADACHE
     Dosage: UNK
     Route: 041
  2. KETAMINE HCL [Suspect]
     Active Substance: KETAMINE HYDROCHLORIDE
     Indication: HEADACHE
     Dosage: UNK
     Route: 041
  3. PROPOFOL. [Suspect]
     Active Substance: PROPOFOL
     Indication: HEADACHE
     Dosage: UNK
     Route: 041

REACTIONS (1)
  - Drug ineffective [Unknown]
